FAERS Safety Report 6820779-9 (Version None)
Quarter: 2010Q3

REPORT INFORMATION
  Report Type: 
  Country: None (occurrence: None)
  Receive Date: 20100707
  Receipt Date: 20051108
  Transmission Date: 20110219
  Serious: No
  Sender: FDA-Public Use
  Company Number: US-PFIZER INC-2007058347

PATIENT
  Sex: Male

DRUGS (3)
  1. ZOLOFT [Suspect]
     Dates: start: 20040101
  2. LIPITOR [Suspect]
     Dates: start: 20040101
  3. SEROQUEL [Concomitant]

REACTIONS (1)
  - MYALGIA [None]
